FAERS Safety Report 22144249 (Version 1)
Quarter: 2023Q1

REPORT INFORMATION
  Report Type: Spontaneous
  Country: US (occurrence: US)
  Receive Date: 20230328
  Receipt Date: 20230328
  Transmission Date: 20230418
  Serious: Yes (Other)
  Sender: FDA-Public Use
  Company Number: US-CIPLA LTD.-2023US01614

PATIENT

DRUGS (2)
  1. WARFARIN [Suspect]
     Active Substance: WARFARIN
     Indication: Anticoagulant therapy
     Dosage: 1 MILLIGRAM, QD
     Route: 048
     Dates: start: 202302
  2. WARFARIN [Concomitant]
     Active Substance: WARFARIN
     Indication: Anticoagulant therapy
     Dosage: 4 MILLIGRAM, UNK
     Route: 065
     Dates: start: 1993

REACTIONS (3)
  - Anticoagulation drug level below therapeutic [Unknown]
  - Recalled product administered [Unknown]
  - Product impurity [Unknown]

NARRATIVE: CASE EVENT DATE: 20230201
